FAERS Safety Report 9159525 (Version 1)
Quarter: 2013Q1

REPORT INFORMATION
  Report Type: Spontaneous
  Country: US (occurrence: None)
  Receive Date: 20130312
  Receipt Date: 20130312
  Transmission Date: 20140127
  Serious: Yes (Other)
  Sender: FDA-Public Use
  Company Number: None

PATIENT
  Age: 35 Year
  Sex: Male
  Weight: 83.92 kg

DRUGS (1)
  1. AZITHROMYCIN [Suspect]
     Indication: SINUSITIS
     Route: 048
     Dates: start: 20130306, end: 20130310

REACTIONS (4)
  - Nervousness [None]
  - Anxiety [None]
  - Depression [None]
  - Impaired work ability [None]
